FAERS Safety Report 8299246-4 (Version None)
Quarter: 2012Q2

REPORT INFORMATION
  Report Type: 
  Country: None (occurrence: None)
  Receive Date: 20120419
  Receipt Date: 20120413
  Transmission Date: 20120825
  Serious: No
  Sender: FDA-Public Use
  Company Number: US-PFIZER INC-2012052681

PATIENT
  Sex: Male

DRUGS (5)
  1. ADENOVIRUS VACCINE [Suspect]
     Dosage: UNK
  2. TEGRETOL [Suspect]
     Dosage: UNK
  3. AZITHROMYCIN [Suspect]
     Dosage: UNK
  4. HEPATITIS B IMMUNE GLOBULIN (HUMAN) [Suspect]
     Dosage: UNK
  5. HYDROCODONE BITARTRATE [Suspect]
     Dosage: UNK

REACTIONS (1)
  - DRUG HYPERSENSITIVITY [None]
